FAERS Safety Report 8123942-2 (Version None)
Quarter: 2012Q1

REPORT INFORMATION
  Report Type: 
  Country: None (occurrence: None)
  Receive Date: 20120209
  Receipt Date: 20120126
  Transmission Date: 20120608
  Serious: Yes (Life-Threatening)
  Sender: FDA-Public Use
  Company Number: DE-RANBAXY-2012R1-52195

PATIENT
  Age: 43 Year
  Sex: Male

DRUGS (4)
  1. WEIN [Suspect]
     Indication: PRODUCT USED FOR UNKNOWN INDICATION
     Route: 048
  2. LORAZEPAM [Suspect]
     Indication: SELF-MEDICATION
     Dosage: UNK
     Route: 048
  3. LYRICA [Suspect]
     Indication: ANXIETY DISORDER
     Dosage: UNK
     Route: 048
     Dates: start: 20111213
  4. METHADONE HCL [Suspect]
     Indication: DRUG DEPENDENCE
     Dosage: UNK
     Route: 048
     Dates: start: 20080401

REACTIONS (3)
  - OVERDOSE [None]
  - POLYSUBSTANCE DEPENDENCE [None]
  - COMA [None]
